FAERS Safety Report 9335278 (Version 3)
Quarter: 2013Q3

REPORT INFORMATION
  Report Type: Spontaneous
  Country: US (occurrence: US)
  Receive Date: 20130606
  Receipt Date: 20130712
  Transmission Date: 20140515
  Serious: Yes (Hospitalization)
  Sender: FDA-Public Use
  Company Number: US-GILEAD-2013-0076618

PATIENT
  Age: 41 Year
  Sex: Female

DRUGS (6)
  1. LETAIRIS [Suspect]
     Indication: PULMONARY HYPERTENSION
     Dosage: 10 MG, QD
     Route: 048
     Dates: start: 20101210
  2. LETAIRIS [Suspect]
     Indication: SYSTEMIC LUPUS ERYTHEMATOSUS
  3. LETAIRIS [Suspect]
     Indication: CONNECTIVE TISSUE DISORDER
  4. COUMADIN                           /00014802/ [Concomitant]
  5. REVATIO [Concomitant]
  6. EPOPROSTENOL [Concomitant]

REACTIONS (3)
  - Pneumonia [Recovered/Resolved]
  - Dry throat [Unknown]
  - Dyspnoea [Unknown]
